FAERS Safety Report 22255170 (Version 1)
Quarter: 2023Q2

REPORT INFORMATION
  Report Type: Spontaneous
  Country: US (occurrence: US)
  Receive Date: 20230426
  Receipt Date: 20230426
  Transmission Date: 20230721
  Serious: Yes (Hospitalization)
  Sender: FDA-Public Use
  Company Number: US-AMNEAL PHARMACEUTICALS-2022-AMRX-01724

PATIENT
  Sex: Female

DRUGS (2)
  1. WARFARIN SODIUM [Suspect]
     Active Substance: WARFARIN SODIUM
     Indication: Product used for unknown indication
     Dosage: UNK
     Route: 065
  2. LENVIMA [Suspect]
     Active Substance: LENVATINIB
     Indication: Endometrial cancer
     Dosage: 10 MG
     Route: 065
     Dates: start: 20220325

REACTIONS (2)
  - Vaginal haemorrhage [Recovering/Resolving]
  - Decreased appetite [Unknown]

NARRATIVE: CASE EVENT DATE: 20220501
